FAERS Safety Report 10007305 (Version 1)
Quarter: 2014Q1

REPORT INFORMATION
  Report Type: Spontaneous
  Country: DK (occurrence: FR)
  Receive Date: 20140313
  Receipt Date: 20140313
  Transmission Date: 20141002
  Serious: Yes (Life-Threatening)
  Sender: FDA-Public Use
  Company Number: FR-FRI-1000060582

PATIENT
  Age: 5 Day
  Sex: Male
  Weight: 3.35 kg

DRUGS (3)
  1. CITALOPRAM [Suspect]
     Route: 064
     Dates: end: 201401
  2. ALDOMET [Suspect]
     Route: 064
     Dates: end: 20140201
  3. ABILIFY [Suspect]
     Route: 064
     Dates: end: 201401

REACTIONS (4)
  - Pulmonary arterial hypertension [Not Recovered/Not Resolved]
  - Hypertension [Not Recovered/Not Resolved]
  - Renal artery stenosis [Not Recovered/Not Resolved]
  - Exposure during pregnancy [Recovered/Resolved]
